FAERS Safety Report 14070828 (Version 1)
Quarter: 2017Q4

REPORT INFORMATION
  Report Type: Spontaneous
  Country: US (occurrence: US)
  Receive Date: 20171010
  Receipt Date: 20171010
  Transmission Date: 20180321
  Serious: Yes (Hospitalization)
  Sender: FDA-Public Use
  Company Number: US-ASTRAZENECA-2017SF01215

PATIENT
  Sex: Male

DRUGS (2)
  1. BYETTA [Suspect]
     Active Substance: EXENATIDE
     Indication: TYPE 2 DIABETES MELLITUS
     Route: 058
     Dates: start: 2017
  2. INSULIN [Concomitant]
     Active Substance: INSULIN NOS
     Route: 058

REACTIONS (3)
  - Skin ulcer [Unknown]
  - Intentional product misuse [Unknown]
  - Device issue [Unknown]
